FAERS Safety Report 21347666 (Version 1)
Quarter: 2022Q3

REPORT INFORMATION
  Report Type: Spontaneous
  Country: US (occurrence: US)
  Receive Date: 20220919
  Receipt Date: 20220919
  Transmission Date: 20221027
  Serious: No
  Sender: FDA-Public Use
  Company Number: US-NOVARTISTESTPH-NVSC2022US210934

PATIENT
  Sex: Female

DRUGS (1)
  1. TASIGNA [Suspect]
     Active Substance: NILOTINIB
     Indication: Chronic myeloid leukaemia
     Dosage: 300 MG, BID
     Route: 065
     Dates: start: 20220909, end: 20220913

REACTIONS (6)
  - Headache [Recovering/Resolving]
  - Dehydration [Recovering/Resolving]
  - Tachycardia [Recovering/Resolving]
  - Asthenia [Recovering/Resolving]
  - Paraesthesia [Recovering/Resolving]
  - Blood pressure increased [Recovering/Resolving]
